FAERS Safety Report 8612319 (Version 2)
Quarter: 2012Q4

REPORT INFORMATION
  Report Type: 
  Country: US (occurrence: US)
  Receive Date: 20120613
  Receipt Date: 20121127
  Transmission Date: 20130627
  Serious: Yes (Other)
  Sender: FDA-Public Use
  Company Number: US-PFIZER INC-2012135846

PATIENT
  Age: 30 Year
  Sex: Female

DRUGS (3)
  1. LO/OVRAL-28 [Suspect]
     Indication: CONTRACEPTION
     Dosage: UNK
  2. PROZAC [Concomitant]
     Dosage: UNK
  3. TRAZODONE [Concomitant]
     Dosage: UNK

REACTIONS (2)
  - Drug ineffective [Unknown]
  - Unintended pregnancy [Unknown]
